FAERS Safety Report 9912807 (Version 1)
Quarter: 2014Q1

REPORT INFORMATION
  Report Type: Spontaneous
  Country: PL (occurrence: None)
  Receive Date: 20140214
  Receipt Date: 20140214
  Transmission Date: 20141002
  Serious: Yes (Hospitalization)
  Sender: FDA-Public Use
  Company Number: 2014AP001163

PATIENT
  Age: 61 Year
  Sex: Female

DRUGS (3)
  1. ZOLPIDEM (ZOLPIDEM) [Suspect]
     Indication: INSOMNIA
  2. SIBUTRAMINE (SIBUTRAMINE) [Concomitant]
  3. RISPERIDONE (RISPERIDONE) [Concomitant]

REACTIONS (10)
  - Psychotic disorder [None]
  - Abnormal behaviour [None]
  - Drug interaction [None]
  - Hallucination, auditory [None]
  - Persecutory delusion [None]
  - Depressed mood [None]
  - Amnesia [None]
  - Anxiety [None]
  - Depressed mood [None]
  - Sleep disorder [None]
